FAERS Safety Report 20075866 (Version 1)
Quarter: 2021Q4

REPORT INFORMATION
  Report Type: Spontaneous
  Country: US (occurrence: US)
  Receive Date: 20211116
  Receipt Date: 20211116
  Transmission Date: 20220303
  Serious: No
  Sender: FDA-Public Use
  Company Number: US-NOVOPROD-847814

PATIENT
  Sex: Female

DRUGS (1)
  1. TRESIBA [Suspect]
     Active Substance: INSULIN DEGLUDEC
     Indication: Product used for unknown indication
     Dosage: 10 OR 14 UNITS ONCE A DAY ( IF OVER 249MG/DL )
     Route: 058
     Dates: start: 20210901

REACTIONS (3)
  - Visual impairment [Unknown]
  - Blood glucose increased [Recovering/Resolving]
  - Wrong technique in product usage process [Unknown]
